FAERS Safety Report 9112413 (Version 2)
Quarter: 2014Q1

REPORT INFORMATION
  Report Type: Spontaneous
  Country: US (occurrence: US)
  Receive Date: 20130219
  Receipt Date: 20140213
  Transmission Date: 20141002
  Serious: No
  Sender: FDA-Public Use
  Company Number: US-BRISTOL-MYERS SQUIBB COMPANY-17046996

PATIENT
  Age: 50 Year
  Sex: Female

DRUGS (1)
  1. ABATACEPT SUBQ INJECTION 125MG/ML [Suspect]
     Indication: RHEUMATOID ARTHRITIS
     Dosage: BACK TO ORENCIA IV IN JUN 2012?RECENT DOSE 11JAN13
     Route: 058
     Dates: start: 201205

REACTIONS (3)
  - Drug ineffective [Unknown]
  - Fall [Unknown]
  - Wound infection [Unknown]
